FAERS Safety Report 22360829 (Version 1)
Quarter: 2023Q2

REPORT INFORMATION
  Report Type: Spontaneous
  Country: US (occurrence: None)
  Receive Date: 20230524
  Receipt Date: 20230524
  Transmission Date: 20230721
  Serious: Yes (Other)
  Sender: FDA-Public Use
  Company Number: 2023A117402

PATIENT
  Sex: Female
  Weight: 76.2 kg

DRUGS (6)
  1. NEXIUM [Suspect]
     Active Substance: ESOMEPRAZOLE MAGNESIUM
     Route: 048
  2. TOPROL XL [Suspect]
     Active Substance: METOPROLOL SUCCINATE
     Route: 048
  3. RIMEGEPANT [Concomitant]
     Active Substance: RIMEGEPANT
  4. TOPROL XL [Concomitant]
     Active Substance: METOPROLOL SUCCINATE
     Route: 048
  5. AMOXIL [Concomitant]
     Active Substance: AMOXICILLIN
     Route: 048
  6. ATIVAN [Concomitant]
     Active Substance: LORAZEPAM
     Route: 048

REACTIONS (12)
  - Generalised anxiety disorder [Unknown]
  - Migraine [Unknown]
  - Red blood cell sedimentation rate abnormal [Unknown]
  - Gastrooesophageal reflux disease [Unknown]
  - Tachycardia [Unknown]
  - Fatigue [Unknown]
  - Cough [Unknown]
  - Chest discomfort [Unknown]
  - Abdominal pain [Unknown]
  - Arthralgia [Unknown]
  - Headache [Unknown]
  - Amenorrhoea [Unknown]
